FAERS Safety Report 21371008 (Version 1)
Quarter: 2022Q3

REPORT INFORMATION
  Report Type: Report from Study
  Country: AU (occurrence: AU)
  Receive Date: 20220923
  Receipt Date: 20220923
  Transmission Date: 20221026
  Serious: Yes (Hospitalization)
  Sender: FDA-Public Use
  Company Number: AU-MYLANLABS-2022M1095878

PATIENT
  Sex: Female

DRUGS (3)
  1. ALBUTEROL [Suspect]
     Active Substance: ALBUTEROL
     Indication: Tocolysis
     Dosage: 5 MILLIGRAM,5 MG OF THE DRUG DILUTED IN 100 ML NORMAL SALINE ADMINISTERED AT A RATE OF 12 ML/H
     Route: 065
  2. NIFEDIPINE [Suspect]
     Active Substance: NIFEDIPINE
     Indication: Tocolysis
     Dosage: 60 MILLIGRAM
     Route: 048
  3. SALINE [Concomitant]
     Active Substance: SODIUM CHLORIDE
     Indication: Vehicle solution use
     Dosage: UNK,5 MG OF THE DRUG DILUTED IN 100 ML NORMAL SALINE ADMINISTERED AT A RATE OF 12 ML/H
     Route: 065

REACTIONS (4)
  - Chest pain [Unknown]
  - Electrocardiogram abnormal [Unknown]
  - Maternal exposure during pregnancy [Unknown]
  - Off label use [Unknown]
